FAERS Safety Report 6145981-3 (Version None)
Quarter: 2009Q2

REPORT INFORMATION
  Report Type: 
  Country: None (occurrence: None)
  Receive Date: 20090406
  Receipt Date: 20090406
  Transmission Date: 20091009
  Serious: Yes (Other)
  Sender: FDA-Public Use
  Company Number: None

PATIENT
  Sex: Female
  Weight: 90.7194 kg

DRUGS (1)
  1. VERAPAMIL [Suspect]
     Indication: ARRHYTHMIA
     Dosage: 120 MG 1 A DAY
     Dates: start: 20080801

REACTIONS (2)
  - HEART RATE IRREGULAR [None]
  - PRODUCT QUALITY ISSUE [None]
